FAERS Safety Report 16989151 (Version 1)
Quarter: 2019Q4

REPORT INFORMATION
  Report Type: Spontaneous
  Country: US (occurrence: US)
  Receive Date: 20190919
  Receipt Date: 20190919
  Transmission Date: 20200122
  Serious: Yes (Hospitalization)
  Sender: FDA-Public Use
  Company Number: None

PATIENT
  Sex: Female

DRUGS (9)
  1. METROGEL [Concomitant]
     Active Substance: METRONIDAZOLE
  2. SPIRIVA [Concomitant]
     Active Substance: TIOTROPIUM BROMIDE MONOHYDRATE
  3. PROPRANOLOL [Concomitant]
     Active Substance: PROPRANOLOL HYDROCHLORIDE
  4. VITAMIN C [Concomitant]
     Active Substance: ASCORBIC ACID
  5. GABAPENTIN. [Concomitant]
     Active Substance: GABAPENTIN
  6. STELARA [Suspect]
     Active Substance: USTEKINUMAB
     Indication: CROHN^S DISEASE
     Route: 042
     Dates: start: 201908
  7. MONTELUKAST [Concomitant]
     Active Substance: MONTELUKAST SODIUM
  8. VITAMIN B12 [Concomitant]
     Active Substance: CYANOCOBALAMIN
  9. PANTAPROZOLE [Concomitant]
     Active Substance: PANTOPRAZOLE SODIUM

REACTIONS (2)
  - Hypotension [None]
  - Asthma [None]
